FAERS Safety Report 5318479-X (Version None)
Quarter: 2007Q2

REPORT INFORMATION
  Report Type: 
  Country: None (occurrence: None)
  Receive Date: 20070501
  Receipt Date: 20070420
  Transmission Date: 20071010
  Serious: Yes (Other)
  Sender: FDA-Public Use
  Company Number: GXKR2007IN03653

PATIENT
  Age: 17 Year
  Sex: Male
  Weight: 55 kg

DRUGS (2)
  1. ATORVASTATIN CALCIUM [Suspect]
     Indication: NEPHROTIC SYNDROME
     Dosage: 10 MG, QD, ORAL
     Route: 048
  2. PREDNISOLONE [Suspect]
     Indication: NEPHROTIC SYNDROME
     Dosage: 60 MG, QD, ORAL
     Route: 048

REACTIONS (2)
  - GAIT DISTURBANCE [None]
  - RHABDOMYOLYSIS [None]
